FAERS Safety Report 6094112-7 (Version None)
Quarter: 2009Q1

REPORT INFORMATION
  Report Type: 
  Country: None (occurrence: None)
  Receive Date: 20090224
  Receipt Date: 20090224
  Transmission Date: 20090719
  Serious: No
  Sender: FDA-Public Use
  Company Number: None

PATIENT
  Age: 11 Year
  Sex: Female
  Weight: 36.7414 kg

DRUGS (1)
  1. VIGAMOX [Suspect]
     Indication: CONJUNCTIVITIS
     Dosage: ONE DROP IN EACH EYE THREE TIMES DAILY INTRAOCULAR
     Route: 031
     Dates: start: 20090221, end: 20090222

REACTIONS (11)
  - ABNORMAL BEHAVIOUR [None]
  - AFFECT LABILITY [None]
  - CRYING [None]
  - DRY MOUTH [None]
  - FATIGUE [None]
  - FEELING ABNORMAL [None]
  - INAPPROPRIATE AFFECT [None]
  - INITIAL INSOMNIA [None]
  - MEMORY IMPAIRMENT [None]
  - MIDDLE INSOMNIA [None]
  - MIOSIS [None]
